FAERS Safety Report 6542154-7 (Version None)
Quarter: 2010Q1

REPORT INFORMATION
  Report Type: 
  Country: None (occurrence: None)
  Receive Date: 20100119
  Receipt Date: 20100112
  Transmission Date: 20100710
  Serious: Yes (Other)
  Sender: FDA-Public Use
  Company Number: US-JNJFOC-20100105234

PATIENT
  Sex: Male

DRUGS (6)
  1. FAMOTIDINE [Suspect]
     Route: 048
  2. FAMOTIDINE [Suspect]
     Indication: DYSPEPSIA
     Route: 048
  3. COREG [Interacting]
     Indication: CARDIAC DISORDER
  4. PLAVIX [Concomitant]
  5. SPIRONOLACTONE [Concomitant]
  6. LASIX [Concomitant]

REACTIONS (2)
  - BLOOD PRESSURE DECREASED [None]
  - DRUG INTERACTION [None]
